FAERS Safety Report 24356402 (Version 2)
Quarter: 2024Q3

REPORT INFORMATION
  Report Type: Spontaneous
  Country: GB (occurrence: GB)
  Receive Date: 20240924
  Receipt Date: 20240927
  Transmission Date: 20241016
  Serious: Yes (Other)
  Sender: TEVA
  Company Number: GB-UKI-SPO/GBR/24/0013397

PATIENT
  Age: 39 Year
  Sex: Male

DRUGS (2)
  1. PREGABALIN [Suspect]
     Active Substance: PREGABALIN
     Indication: Product used for unknown indication
     Route: 048
  2. ALCOHOL [Concomitant]
     Active Substance: ALCOHOL
     Indication: Product used for unknown indication

REACTIONS (6)
  - Suicide attempt [Unknown]
  - Drug dependence [Unknown]
  - Alcohol interaction [Unknown]
  - Product administered from unauthorised provider [Unknown]
  - Nephropathy toxic [Unknown]
  - Drug abuse [Unknown]
